FAERS Safety Report 9104203 (Version 1)
Quarter: 2013Q1

REPORT INFORMATION
  Report Type: Spontaneous
  Country: US (occurrence: US)
  Receive Date: 20130219
  Receipt Date: 20130219
  Transmission Date: 20140127
  Serious: Yes (Other)
  Sender: FDA-Public Use
  Company Number: PHEH2013US003961

PATIENT
  Age: 85 Year
  Sex: Female
  Weight: 81 kg

DRUGS (2)
  1. EXELON PATCH [Suspect]
     Indication: DEMENTIA ALZHEIMER^S TYPE
     Dosage: 4.6 MG, QD
     Route: 062
     Dates: start: 20121120, end: 20121125
  2. MUCINEX [Concomitant]
     Dosage: UNK UKN, UNK
     Route: 048
     Dates: start: 20121121, end: 20121125

REACTIONS (2)
  - Mental status changes [Not Recovered/Not Resolved]
  - Lethargy [Not Recovered/Not Resolved]
